FAERS Safety Report 5933326-0 (Version None)
Quarter: 2008Q4

REPORT INFORMATION
  Report Type: 
  Country: None (occurrence: None)
  Receive Date: 20081028
  Receipt Date: 20081020
  Transmission Date: 20090506
  Serious: Yes (Other)
  Sender: FDA-Public Use
  Company Number: GB-PFIZER INC-2008087932

PATIENT
  Age: 48 Year
  Sex: Female
  Weight: 80 kg

DRUGS (3)
  1. DIFLUCAN [Suspect]
     Indication: VULVOVAGINAL CANDIDIASIS
     Route: 048
     Dates: start: 20080929, end: 20080929
  2. HEPATITIS A VACCINE [Concomitant]
     Indication: IMMUNISATION
  3. TYPHOID VACCINE [Concomitant]
     Indication: IMMUNISATION

REACTIONS (2)
  - ERYTHEMA MULTIFORME [None]
  - MALAISE [None]
